FAERS Safety Report 16651939 (Version 2)
Quarter: 2019Q3

REPORT INFORMATION
  Report Type: Spontaneous
  Country: US (occurrence: US)
  Receive Date: 20190731
  Receipt Date: 20190919
  Transmission Date: 20191004
  Serious: No
  Sender: FDA-Public Use
  Company Number: US-PFIZER INC-2019322550

PATIENT
  Age: 67 Year
  Sex: Male
  Weight: 68.4 kg

DRUGS (1)
  1. CHANTIX [Suspect]
     Active Substance: VARENICLINE TARTRATE
     Indication: SMOKING CESSATION THERAPY
     Dosage: UNK
     Dates: start: 2017, end: 2018

REACTIONS (1)
  - Weight decreased [Unknown]
